FAERS Safety Report 9242337 (Version 3)
Quarter: 2013Q2

REPORT INFORMATION
  Report Type: Spontaneous
  Country: US (occurrence: US)
  Receive Date: 20130419
  Receipt Date: 20130503
  Transmission Date: 20140414
  Serious: Yes (Other)
  Sender: FDA-Public Use
  Company Number: US-PERRIGO-13US003797

PATIENT
  Age: 55 Year
  Sex: Female
  Weight: 54.42 kg

DRUGS (1)
  1. DAYTIME PE LIQGL 994 [Suspect]
     Indication: INFLUENZA LIKE ILLNESS
     Dosage: 2 LIGUID GELS, ONCE
     Route: 048
     Dates: start: 20130311, end: 20130311

REACTIONS (10)
  - Hallucination [Unknown]
  - Feeling abnormal [Recovering/Resolving]
  - Insomnia [Recovering/Resolving]
  - Heart rate increased [Not Recovered/Not Resolved]
  - Asthenia [Recovering/Resolving]
  - Increased appetite [Not Recovered/Not Resolved]
  - Dyskinesia [Not Recovered/Not Resolved]
  - Anxiety [Not Recovered/Not Resolved]
  - Feeling cold [Not Recovered/Not Resolved]
  - Blood pressure increased [Not Recovered/Not Resolved]
